FAERS Safety Report 5019146-2 (Version None)
Quarter: 2006Q2

REPORT INFORMATION
  Report Type: 
  Country: None (occurrence: None)
  Receive Date: 20060531
  Receipt Date: 20060301
  Transmission Date: 20061013
  Serious: Yes (Hospitalization)
  Sender: FDA-Public Use
  Company Number: S06-UKI-01998-01

PATIENT
  Age: 88 Year
  Sex: Male

DRUGS (9)
  1. ESCITALOPRAM OXALATE [Suspect]
     Dosage: 10 MG QD PO
     Route: 048
     Dates: start: 20050601, end: 20060131
  2. AMITRIPTYLINE HCL [Concomitant]
  3. CALFOVIT D3 [Concomitant]
  4. CODEINE PHOSPHATE [Concomitant]
  5. DOCUSATE [Concomitant]
  6. FERROUS SULFATE TAB [Concomitant]
  7. RANITIDINE [Concomitant]
  8. RISEDRONATE SODIUM [Concomitant]
  9. TEMAZEPAM [Concomitant]

REACTIONS (2)
  - HYPONATRAEMIA [None]
  - URINARY TRACT INFECTION [None]
